FAERS Safety Report 25894289 (Version 2)
Quarter: 2025Q4

REPORT INFORMATION
  Report Type: Spontaneous
  Country: EU (occurrence: EU)
  Receive Date: 20251008
  Receipt Date: 20251024
  Transmission Date: 20260118
  Serious: Yes (Hospitalization)
  Sender: TEVA
  Company Number: EU-TEVA-VS-3378581

PATIENT
  Age: 79 Year
  Sex: Male

DRUGS (1)
  1. METHOTREXATE [Suspect]
     Active Substance: METHOTREXATE
     Indication: Arthralgia
     Route: 065

REACTIONS (11)
  - Toxicity to various agents [Recovering/Resolving]
  - Incorrect dose administered [Unknown]
  - Mouth ulceration [Recovering/Resolving]
  - Inappropriate schedule of product administration [Unknown]
  - Hypertransaminasaemia [Recovering/Resolving]
  - Stomatitis [Recovering/Resolving]
  - Pancytopenia [Recovering/Resolving]
  - Pharyngeal ulceration [Recovering/Resolving]
  - Erythema [Recovering/Resolving]
  - Rash pustular [Recovering/Resolving]
  - Erosive pustular dermatosis [Recovering/Resolving]
